FAERS Safety Report 10726607 (Version 3)
Quarter: 2015Q2

REPORT INFORMATION
  Report Type: Spontaneous
  Country: GB (occurrence: GB)
  Receive Date: 20150121
  Receipt Date: 20150415
  Transmission Date: 20150821
  Serious: Yes (Hospitalization)
  Sender: FDA-Public Use
  Company Number: GB-009507513-1501GBR005590

PATIENT
  Sex: Female

DRUGS (1)
  1. NEXPLANON [Suspect]
     Active Substance: ETONOGESTREL
     Indication: CONTRACEPTION
     Dosage: STRENGTH: 1 IMPLANT
     Route: 058
     Dates: start: 201410

REACTIONS (7)
  - Implant site infection [Not Recovered/Not Resolved]
  - Pain [Unknown]
  - Unintended pregnancy [Not Recovered/Not Resolved]
  - Human chorionic gonadotropin abnormal [Unknown]
  - Medical device complication [Not Recovered/Not Resolved]
  - Device expulsion [Not Recovered/Not Resolved]
  - Anxiety [Unknown]
